FAERS Safety Report 9470745 (Version 2)
Quarter: 2013Q4

REPORT INFORMATION
  Report Type: Spontaneous
  Country: US (occurrence: US)
  Receive Date: 20130822
  Receipt Date: 20131118
  Transmission Date: 20140711
  Serious: Yes (Other)
  Sender: FDA-Public Use
  Company Number: US-SANOFI-AVENTIS-2013SA057517

PATIENT
  Sex: Female
  Weight: 63 kg

DRUGS (1)
  1. ZALTRAP [Suspect]
     Indication: COLON CANCER
     Route: 065
     Dates: start: 20130514, end: 20130604

REACTIONS (4)
  - Intestinal perforation [Recovered/Resolved]
  - Abdominal pain [Recovered/Resolved]
  - Diarrhoea [Recovered/Resolved]
  - Weight decreased [Unknown]
